FAERS Safety Report 16916460 (Version 1)
Quarter: 2019Q4

REPORT INFORMATION
  Report Type: Spontaneous
  Country: CN (occurrence: CN)
  Receive Date: 20191014
  Receipt Date: 20191014
  Transmission Date: 20200122
  Serious: Yes (Other)
  Sender: FDA-Public Use
  Company Number: CN-SA-2019SA279115

PATIENT
  Sex: Female

DRUGS (2)
  1. APROVEL [Suspect]
     Active Substance: IRBESARTAN
     Indication: HYPERTENSION
     Dosage: UNK UNK, UNK
     Route: 048
  2. COAPROVEL [Suspect]
     Active Substance: HYDROCHLOROTHIAZIDE\IRBESARTAN
     Indication: HYPERTENSION
     Dosage: UNK UNK, UNK
     Route: 048

REACTIONS (5)
  - Cardiac failure [Unknown]
  - Oedema [Unknown]
  - Blood pressure increased [Unknown]
  - Dizziness [Not Recovered/Not Resolved]
  - Asthenia [Not Recovered/Not Resolved]
